FAERS Safety Report 8478154-X (Version None)
Quarter: 2012Q2

REPORT INFORMATION
  Report Type: 
  Country: None (occurrence: None)
  Receive Date: 20120629
  Receipt Date: 20120627
  Transmission Date: 20120825
  Serious: Yes (Hospitalization)
  Sender: FDA-Public Use
  Company Number: PHEH2012US012785

PATIENT
  Sex: Female

DRUGS (2)
  1. BACLOFEN [Concomitant]
     Dosage: UNK UKN, PRN
  2. GILENYA [Suspect]
     Dosage: 0.5 MG, QD
     Route: 048
     Dates: start: 20120626

REACTIONS (1)
  - ELECTROCARDIOGRAM QT PROLONGED [None]
